FAERS Safety Report 17450884 (Version 1)
Quarter: 2020Q1

REPORT INFORMATION
  Report Type: Spontaneous
  Country: US (occurrence: US)
  Receive Date: 20200207
  Receipt Date: 20200207
  Transmission Date: 20200409
  Serious: Yes (Disabling)
  Sender: FDA-Public Use
  Company Number: None

PATIENT
  Age: 50 Year
  Sex: Female
  Weight: 57.61 kg

DRUGS (6)
  1. VITAMIN C [Concomitant]
     Active Substance: ASCORBIC ACID
  2. MULTIVITAMIN [Concomitant]
     Active Substance: VITAMINS
  3. LORATADINE. [Concomitant]
     Active Substance: LORATADINE
  4. DICYCLOMINE [Concomitant]
     Active Substance: DICYCLOMINE HYDROCHLORIDE
  5. PROLIA [Suspect]
     Active Substance: DENOSUMAB
     Indication: OSTEOPOROSIS
     Dosage: ?          QUANTITY:IM INJECTION;OTHER FREQUENCY:1 X 6 MONTHS;OTHER ROUTE:INJECTION BY DOCTOR?
     Route: 030
     Dates: start: 20190206, end: 20190206
  6. TRINESSA [Concomitant]
     Active Substance: ETHINYL ESTRADIOL\NORGESTIMATE

REACTIONS (14)
  - Fatigue [None]
  - Back pain [None]
  - Contusion [None]
  - Pain [None]
  - Pain in extremity [None]
  - Gait disturbance [None]
  - Arthralgia [None]
  - Fibromyalgia [None]
  - Osteoporosis [None]
  - Headache [None]
  - Spinal pain [None]
  - Tremor [None]
  - Neck pain [None]
  - Muscle spasms [None]

NARRATIVE: CASE EVENT DATE: 20190420
